FAERS Safety Report 5088602-3 (Version None)
Quarter: 2006Q3

REPORT INFORMATION
  Report Type: 
  Country: None (occurrence: None)
  Receive Date: 20060825
  Receipt Date: 20060816
  Transmission Date: 20061208
  Serious: Yes (Other)
  Sender: FDA-Public Use
  Company Number: GB-JNJFOC-20060804842

PATIENT
  Age: 76 Year
  Sex: Female

DRUGS (4)
  1. REMINYL [Suspect]
     Indication: DEMENTIA ALZHEIMER'S TYPE
     Route: 048
  2. REMINYL XL [Suspect]
     Indication: DEMENTIA ALZHEIMER'S TYPE
  3. LEVOTHYROXINE SODIUM [Concomitant]
     Indication: HYPOTHYROIDISM
     Route: 048
  4. PERINDOPRIL [Concomitant]
     Indication: HYPERTENSION

REACTIONS (4)
  - CONFUSIONAL STATE [None]
  - MALAISE [None]
  - MEMORY IMPAIRMENT [None]
  - RESTLESSNESS [None]
